FAERS Safety Report 8485084-6 (Version None)
Quarter: 2012Q2

REPORT INFORMATION
  Report Type: 
  Country: None (occurrence: None)
  Receive Date: 20120625
  Receipt Date: 20120614
  Transmission Date: 20120825
  Serious: Yes (Disabling, Other)
  Sender: FDA-Public Use
  Company Number: ACO_30753_2012

PATIENT
  Age: 59 Year
  Sex: Male

DRUGS (1)
  1. AMPYRA [Suspect]
     Indication: PRODUCT USED FOR UNKNOWN INDICATION
     Dosage: 10 MG, BID, ORAL
     Route: 048
     Dates: start: 20120601, end: 20120601

REACTIONS (6)
  - URINARY TRACT INFECTION [None]
  - ABASIA [None]
  - DISORIENTATION [None]
  - BALANCE DISORDER [None]
  - HALLUCINATION [None]
  - DIZZINESS [None]
